FAERS Safety Report 20244620 (Version 3)
Quarter: 2022Q1

REPORT INFORMATION
  Report Type: Report from Study
  Country: US (occurrence: US)
  Receive Date: 20211229
  Receipt Date: 20220224
  Transmission Date: 20220423
  Serious: Yes (Hospitalization, Other)
  Sender: FDA-Public Use
  Company Number: US-BIOVITRUM-2021US12708

PATIENT
  Sex: Female

DRUGS (1)
  1. KINERET [Suspect]
     Active Substance: ANAKINRA
     Indication: Rheumatoid arthritis
     Route: 058
     Dates: start: 20211130

REACTIONS (6)
  - COVID-19 pneumonia [Unknown]
  - Infection [Unknown]
  - Condition aggravated [Unknown]
  - Necrotising fasciitis [Unknown]
  - Cellulitis [Unknown]
  - Product dose omission issue [Unknown]
